FAERS Safety Report 16872225 (Version 1)
Quarter: 2019Q4

REPORT INFORMATION
  Report Type: Spontaneous
  Country: US (occurrence: US)
  Receive Date: 20191001
  Receipt Date: 20191001
  Transmission Date: 20200122
  Serious: No
  Sender: FDA-Public Use
  Company Number: None

PATIENT
  Age: 79 Year
  Sex: Male
  Weight: 77.7 kg

DRUGS (7)
  1. DOXAZOSIN 4MG 1 TAB DAILY [Concomitant]
  2. XARELTO [Suspect]
     Active Substance: RIVAROXABAN
     Indication: DEEP VEIN THROMBOSIS
     Route: 048
     Dates: start: 20190404, end: 20190919
  3. MULTIVITAMIN 1 TAB DAILY [Concomitant]
  4. PANTOPRAZOLE 20MG 1 TAB DAILY [Concomitant]
  5. FENOFIBRATE 145MG 1 TAB DAILY [Concomitant]
  6. ASPIRIN 81MG 1 TAB DAILY [Concomitant]
  7. VITAMIN D3 1000UNIT 1 TAB DAILY [Concomitant]

REACTIONS (3)
  - Aspartate aminotransferase increased [None]
  - Alanine aminotransferase increased [None]
  - Blood bilirubin increased [None]

NARRATIVE: CASE EVENT DATE: 20190917
